FAERS Safety Report 5478046-4 (Version None)
Quarter: 2007Q4

REPORT INFORMATION
  Report Type: 
  Country: None (occurrence: None)
  Receive Date: 20071005
  Receipt Date: 20060831
  Transmission Date: 20080405
  Serious: No
  Sender: FDA-Public Use
  Company Number: US-BRISTOL-MYERS SQUIBB COMPANY-13498498

PATIENT
  Age: 55 Year
  Sex: Female

DRUGS (1)
  1. IRBESARTAN [Suspect]
     Indication: HYPERTENSION
     Route: 048
     Dates: start: 20030101

REACTIONS (2)
  - HEADACHE [None]
  - HYPERTENSION [None]
